FAERS Safety Report 5076130-0 (Version None)
Quarter: 2006Q3

REPORT INFORMATION
  Report Type: 
  Country: None (occurrence: None)
  Receive Date: 20060804
  Receipt Date: 20060802
  Transmission Date: 20061208
  Serious: Yes (Other)
  Sender: FDA-Public Use
  Company Number: 219931

PATIENT
  Age: 67 Year
  Sex: Female
  Weight: 66 kg

DRUGS (5)
  1. MABTHERA                  (RITUXIMAB) [Suspect]
     Indication: LYMPHOMA
     Dosage: 600 G, Q3W, INTRAVENOUS
     Route: 042
     Dates: start: 20050819, end: 20051011
  2. DOXORUBICIN HCL [Suspect]
     Indication: LYMPHOMA
     Dosage: 85 G, Q3W, INTRAVENOUS
     Route: 042
     Dates: start: 20050819, end: 20051011
  3. CYCLOPHOSPHAMIDE [Suspect]
     Indication: LYMPHOMA
     Dosage: 1300 MG, Q3W, INTRAVENOUS
     Route: 042
     Dates: start: 20050819, end: 20051011
  4. VINCRISTINE [Suspect]
     Indication: LYMPHOMA
     Dosage: 2 G, Q3W, INTRAVENOUS
     Route: 042
     Dates: start: 20050819, end: 20051011
  5. PREDNISONE [Concomitant]

REACTIONS (3)
  - ACUTE MYOCARDIAL INFARCTION [None]
  - DRUG INTERACTION [None]
  - MYOCARDITIS [None]
